FAERS Safety Report 10896132 (Version 1)
Quarter: 2015Q1

REPORT INFORMATION
  Report Type: Spontaneous
  Country: DE (occurrence: DE)
  Receive Date: 20150309
  Receipt Date: 20150309
  Transmission Date: 20150721
  Serious: Yes (Other)
  Sender: FDA-Public Use
  Company Number: DE-UCBSA-2015002661

PATIENT
  Age: 76 Year
  Sex: Male
  Weight: 86 kg

DRUGS (3)
  1. NEUPRO [Suspect]
     Active Substance: ROTIGOTINE
     Indication: TREMOR
     Dosage: 4 MG, UNK
     Route: 062
     Dates: start: 20150119
  2. XARELTO [Concomitant]
     Active Substance: RIVAROXABAN
     Indication: PRODUCT USED FOR UNKNOWN INDICATION
  3. NEUPRO [Suspect]
     Active Substance: ROTIGOTINE
     Indication: PARKINSON^S DISEASE
     Dosage: 6 MG, ONCE DAILY (QD)
     Route: 062

REACTIONS (2)
  - Eye movement disorder [Unknown]
  - Photopsia [Unknown]

NARRATIVE: CASE EVENT DATE: 20141218
